APPROVED DRUG PRODUCT: OXAZEPAM
Active Ingredient: OXAZEPAM
Strength: 10MG
Dosage Form/Route: CAPSULE;ORAL
Application: A071955 | Product #001
Applicant: AMERICAN THERAPEUTICS INC
Approved: Mar 3, 1988 | RLD: No | RS: No | Type: DISCN